FAERS Safety Report 10006506 (Version 2)
Quarter: 2014Q2

REPORT INFORMATION
  Report Type: Spontaneous
  Country: US (occurrence: US)
  Receive Date: 20140313
  Receipt Date: 20140423
  Transmission Date: 20141212
  Serious: Yes (Other)
  Sender: FDA-Public Use
  Company Number: US-ASTRAZENECA-2014SE16652

PATIENT
  Age: 73 Year
  Sex: Female
  Weight: 95.7 kg

DRUGS (5)
  1. SYMBICORT [Suspect]
     Indication: CHRONIC OBSTRUCTIVE PULMONARY DISEASE
     Dosage: 160/4.5, 2 PUFFS BID
     Route: 055
     Dates: start: 2013, end: 20140304
  2. OTHER (UNSPECIFIED) [Concomitant]
     Indication: BLOOD PRESSURE ABNORMAL
  3. OTHER (UNSPECIFIED) 1 [Concomitant]
     Indication: CARDIAC DISORDER
  4. OTHER (UNSPECIFIED) 2 [Concomitant]
     Indication: DIABETES MELLITUS
  5. OTHER (UNSPECIFIED) 3 [Concomitant]
     Indication: GASTROOESOPHAGEAL REFLUX DISEASE

REACTIONS (4)
  - Breast cancer [Unknown]
  - Dyspnoea [Unknown]
  - Drug dose omission [Unknown]
  - Circumstance or information capable of leading to medication error [Unknown]
